FAERS Safety Report 9357938 (Version 1)
Quarter: 2013Q2

REPORT INFORMATION
  Report Type: Spontaneous
  Country: DE (occurrence: None)
  Receive Date: 20130617
  Receipt Date: 20130617
  Transmission Date: 20140414
  Serious: Yes (Other)
  Sender: FDA-Public Use
  Company Number: GER/GER/13/0029991

PATIENT
  Age: 23 Year
  Sex: Female
  Weight: 91 kg

DRUGS (5)
  1. FLUOXETINE [Suspect]
     Indication: DEPRESSION
     Dosage: 40 MG, 2 IN 1 D
     Route: 048
     Dates: start: 20071203, end: 20070122
  2. DIPIPERON [Suspect]
     Indication: PSYCHOTIC DISORDER
     Route: 048
     Dates: start: 20071203, end: 20080122
  3. METHYLPHENIDAT [Suspect]
     Indication: DEPRESSION
     Route: 048
     Dates: start: 20071203, end: 20080122
  4. FOLIO FORTE (FOLIC ACID) [Concomitant]
  5. INSULIN (INSULIN) [Concomitant]

REACTIONS (3)
  - Thrombocytopenia [None]
  - Caesarean section [None]
  - Exposure during pregnancy [None]
